FAERS Safety Report 5169161-3 (Version None)
Quarter: 2006Q4

REPORT INFORMATION
  Report Type: 
  Country: None (occurrence: None)
  Receive Date: 20061204
  Receipt Date: 20061127
  Transmission Date: 20070319
  Serious: Yes (Other)
  Sender: FDA-Public Use
  Company Number: 2006144812

PATIENT
  Age: 40 Year
  Sex: Female

DRUGS (2)
  1. PROCARDIA [Suspect]
  2. ZESTRIL [Suspect]

REACTIONS (1)
  - CEREBROVASCULAR ACCIDENT [None]
